FAERS Safety Report 18538657 (Version 1)
Quarter: 2020Q4

REPORT INFORMATION
  Report Type: Spontaneous
  Country: FR (occurrence: FR)
  Receive Date: 20201124
  Receipt Date: 20201124
  Transmission Date: 20210114
  Serious: Yes (Death, Hospitalization)
  Sender: FDA-Public Use
  Company Number: NVSC2020FR312340

PATIENT
  Age: 70 Year
  Sex: Female
  Weight: 74 kg

DRUGS (7)
  1. KEYTRUDA [Suspect]
     Active Substance: PEMBROLIZUMAB
     Indication: LUNG ADENOCARCINOMA
     Dosage: 1 UNK, CYCLIC
     Route: 042
     Dates: start: 202006, end: 20200828
  2. TIORFAN [Suspect]
     Active Substance: RACECADOTRIL
     Indication: COLITIS
     Dosage: 2 DF,QD
     Route: 048
     Dates: start: 20201002, end: 20201027
  3. TITANOREINE [Suspect]
     Active Substance: CARRAGEENAN\TITANIUM\ZINC
     Indication: COLITIS
     Dosage: 2 UNK,QD
     Route: 054
     Dates: start: 20201006, end: 20201027
  4. BACTRIM [Suspect]
     Active Substance: SULFAMETHOXAZOLE\TRIMETHOPRIM
     Indication: COLITIS
     Dosage: 1 DF,QD
     Route: 048
     Dates: start: 20201012, end: 20201027
  5. SPASFON (PHLOROGLUCINOL/TRIMETHYLPHLOROGLUCINOL) [Suspect]
     Active Substance: PHLOROGLUCINOL\1,3,5-TRIMETHOXYBENZENE
     Indication: COLITIS
     Dosage: 1 DF, PRN
     Route: 048
     Dates: start: 20201002, end: 20201027
  6. PREDNISONE. [Suspect]
     Active Substance: PREDNISONE
     Indication: COLITIS
     Dosage: 70 MG,QD
     Route: 048
     Dates: start: 20201008, end: 20201027
  7. SMECTA [Suspect]
     Active Substance: MONTMORILLONITE
     Indication: COLITIS
     Dosage: 1 DF, PRN
     Route: 048
     Dates: start: 20201002, end: 20201027

REACTIONS (1)
  - Toxic epidermal necrolysis [Fatal]

NARRATIVE: CASE EVENT DATE: 20201028
